FAERS Safety Report 9065097 (Version 1)
Quarter: 2013Q1

REPORT INFORMATION
  Report Type: Spontaneous
  Country: US (occurrence: US)
  Receive Date: 20130214
  Receipt Date: 20130214
  Transmission Date: 20140127
  Serious: Yes (Other)
  Sender: FDA-Public Use
  Company Number: US-PFIZER INC-2013040605

PATIENT
  Age: 78 Year
  Sex: Male
  Weight: 81.63 kg

DRUGS (3)
  1. TOVIAZ [Suspect]
     Indication: INCONTINENCE
     Dosage: 8 MG, 1X/DAY
     Dates: start: 201301
  2. SYNTHROID [Concomitant]
     Indication: THYROID DISORDER
     Dosage: UNK,1X/DAY
  3. SINEMET [Concomitant]
     Indication: PARKINSON^S DISEASE
     Dosage: UNK, AS NEEDED

REACTIONS (3)
  - Urinary retention [Unknown]
  - Incorrect dose administered [Unknown]
  - Drug ineffective [Unknown]
